FAERS Safety Report 17953892 (Version 1)
Quarter: 2020Q2

REPORT INFORMATION
  Report Type: Spontaneous
  Country: US (occurrence: US)
  Receive Date: 20200628
  Receipt Date: 20200628
  Transmission Date: 20200714
  Serious: No
  Sender: FDA-Public Use
  Company Number: US-GALDERMA-US2020027636

PATIENT
  Age: 54 Year
  Sex: Female

DRUGS (4)
  1. PROACTIV MD DEEP CLEANSING FACE WASH [Concomitant]
     Active Substance: COSMETICS
     Indication: DERMAL CYST
     Route: 061
     Dates: start: 20200509, end: 20200513
  2. PROACTIV MD ADAPALENE ACNE TREATMENT [Suspect]
     Active Substance: ADAPALENE
     Indication: DERMAL CYST
     Dosage: 0.1%
     Route: 061
     Dates: start: 20200509, end: 20200513
  3. PROACTIV DEEP CLEANSING WASH [Concomitant]
     Active Substance: SALICYLIC ACID
     Indication: DERMAL CYST
     Route: 061
     Dates: start: 20200509, end: 20200513
  4. PROACTIV REDNESS RELIEF SERUM [Concomitant]
     Indication: DERMAL CYST
     Route: 061
     Dates: start: 20200509, end: 20200513

REACTIONS (2)
  - Product use issue [Recovered/Resolved]
  - Acne cystic [Recovering/Resolving]

NARRATIVE: CASE EVENT DATE: 20200509
